FAERS Safety Report 13374931 (Version 1)
Quarter: 2017Q1

REPORT INFORMATION
  Report Type: Spontaneous
  Country: US (occurrence: US)
  Receive Date: 20170327
  Receipt Date: 20170327
  Transmission Date: 20170429
  Serious: Yes (Other)
  Sender: FDA-Public Use
  Company Number: US-BAXALTA-2017BLT002345

PATIENT
  Sex: Female
  Weight: 68.48 kg

DRUGS (25)
  1. LMX                                /00033401/ [Concomitant]
     Indication: PRODUCT USED FOR UNKNOWN INDICATION
  2. VITAMIN B12 [Concomitant]
     Active Substance: CYANOCOBALAMIN
     Indication: PRODUCT USED FOR UNKNOWN INDICATION
  3. PENICILLIN                         /00042301/ [Concomitant]
     Indication: PRODUCT USED FOR UNKNOWN INDICATION
  4. VITAMIN B NOS [Concomitant]
     Active Substance: VITAMIN B
     Indication: PRODUCT USED FOR UNKNOWN INDICATION
  5. BI EST [Concomitant]
     Active Substance: ESTRADIOL\ESTRIOL
     Indication: PRODUCT USED FOR UNKNOWN INDICATION
  6. NASONEX [Concomitant]
     Active Substance: MOMETASONE FUROATE
     Indication: PRODUCT USED FOR UNKNOWN INDICATION
  7. COENZYME Q10 [Concomitant]
     Active Substance: UBIDECARENONE
     Indication: PRODUCT USED FOR UNKNOWN INDICATION
  8. TESTOSTERONE. [Concomitant]
     Active Substance: TESTOSTERONE
     Indication: PRODUCT USED FOR UNKNOWN INDICATION
  9. GAMMAGARD LIQUID [Concomitant]
     Active Substance: HUMAN IMMUNOGLOBULIN G
     Indication: PRIMARY IMMUNODEFICIENCY SYNDROME
     Route: 058
  10. ALOE VERA [Concomitant]
     Active Substance: ALOE VERA LEAF
     Indication: PRODUCT USED FOR UNKNOWN INDICATION
  11. CUVITRU [Suspect]
     Active Substance: HUMAN IMMUNOGLOBULIN G
     Indication: PRIMARY IMMUNODEFICIENCY SYNDROME
     Dosage: 20 G, EVERY 2 WK
     Route: 058
     Dates: start: 20170126
  12. NALTREXONE [Concomitant]
     Active Substance: NALTREXONE
     Indication: PRODUCT USED FOR UNKNOWN INDICATION
  13. CUVITRU [Suspect]
     Active Substance: HUMAN IMMUNOGLOBULIN G
     Dosage: UNK
     Route: 058
  14. ENZYMES NOS [Concomitant]
     Indication: PRODUCT USED FOR UNKNOWN INDICATION
  15. ACETAMINOPHEN. [Concomitant]
     Active Substance: ACETAMINOPHEN
     Indication: PRODUCT USED FOR UNKNOWN INDICATION
  16. FISH OIL [Concomitant]
     Active Substance: FISH OIL
     Indication: PRODUCT USED FOR UNKNOWN INDICATION
  17. MUCINEX [Concomitant]
     Active Substance: GUAIFENESIN
     Indication: PRODUCT USED FOR UNKNOWN INDICATION
  18. DIPHENHYDRAMINE. [Concomitant]
     Active Substance: DIPHENHYDRAMINE
     Indication: PRODUCT USED FOR UNKNOWN INDICATION
  19. EPIPEN [Concomitant]
     Active Substance: EPINEPHRINE
     Indication: PRODUCT USED FOR UNKNOWN INDICATION
  20. VITAMIN D3 [Concomitant]
     Active Substance: CHOLECALCIFEROL
     Indication: PRODUCT USED FOR UNKNOWN INDICATION
  21. PROBIOTICS NOS [Concomitant]
     Active Substance: PROBIOTICS NOS
     Indication: PRODUCT USED FOR UNKNOWN INDICATION
  22. PHOSPHATIDYLSERINE [Concomitant]
     Indication: PRODUCT USED FOR UNKNOWN INDICATION
  23. ATENOLOL. [Concomitant]
     Active Substance: ATENOLOL
     Indication: PRODUCT USED FOR UNKNOWN INDICATION
  24. PROGESTERONE. [Concomitant]
     Active Substance: PROGESTERONE
     Indication: PRODUCT USED FOR UNKNOWN INDICATION
  25. ARMOUR THYROID [Concomitant]
     Active Substance: THYROID, PORCINE
     Indication: PRODUCT USED FOR UNKNOWN INDICATION

REACTIONS (6)
  - Swelling [Unknown]
  - Rhinitis [Unknown]
  - Pain [Unknown]
  - Headache [Unknown]
  - Rash [Unknown]
  - Fatigue [Unknown]
